FAERS Safety Report 21610004 (Version 1)
Quarter: 2022Q4

REPORT INFORMATION
  Report Type: Spontaneous
  Country: US (occurrence: US)
  Receive Date: 20221117
  Receipt Date: 20221117
  Transmission Date: 20230113
  Serious: Yes (Hospitalization)
  Sender: FDA-Public Use
  Company Number: US-ORGANON-O2211USA001328

PATIENT
  Sex: Male

DRUGS (2)
  1. PROPECIA [Suspect]
     Active Substance: FINASTERIDE
     Indication: Alopecia
     Dosage: 1 PILL ONCE A DAY
     Route: 048
     Dates: start: 2013, end: 2021
  2. VRAYLAR [Concomitant]
     Active Substance: CARIPRAZINE
     Dosage: UNK

REACTIONS (5)
  - Adverse event [Unknown]
  - Sleep disorder [Unknown]
  - Depression [Not Recovered/Not Resolved]
  - Feeling abnormal [Not Recovered/Not Resolved]
  - Disturbance in attention [Not Recovered/Not Resolved]

NARRATIVE: CASE EVENT DATE: 20150101
